FAERS Safety Report 15575112 (Version 3)
Quarter: 2018Q4

REPORT INFORMATION
  Report Type: Spontaneous
  Country: DE (occurrence: DE)
  Receive Date: 20181101
  Receipt Date: 20181112
  Transmission Date: 20190205
  Serious: Yes (Life-Threatening, Hospitalization)
  Sender: FDA-Public Use
  Company Number: DE-PFIZER INC-2018415605

PATIENT
  Age: 1 Year
  Sex: Male

DRUGS (2)
  1. MINPROG [Suspect]
     Active Substance: ALPROSTADIL
     Dosage: UNK
  2. MINPROG [Suspect]
     Active Substance: ALPROSTADIL
     Indication: DUCTUS ARTERIOSUS STENOSIS FOETAL
     Dosage: 500 UG, UNK
     Route: 042

REACTIONS (1)
  - Drug ineffective [Recovered/Resolved]

NARRATIVE: CASE EVENT DATE: 20180920
